FAERS Safety Report 19939262 (Version 1)
Quarter: 2021Q4

REPORT INFORMATION
  Report Type: Report from Study
  Country: MX (occurrence: MX)
  Receive Date: 20211011
  Receipt Date: 20211011
  Transmission Date: 20220303
  Serious: Yes (Hospitalization, Other)
  Sender: FDA-Public Use
  Company Number: MX-NOVARTISPH-PHHY2013MX017073

PATIENT
  Age: 72 Year
  Sex: Female
  Weight: 70 kg

DRUGS (12)
  1. HYDROCHLOROTHIAZIDE\VALSARTAN [Suspect]
     Active Substance: HYDROCHLOROTHIAZIDE\VALSARTAN
     Indication: Hypertension
     Dosage: 1 DF, QD (320/25 MG)
     Route: 065
     Dates: start: 201211
  2. HYDROCHLOROTHIAZIDE\VALSARTAN [Suspect]
     Active Substance: HYDROCHLOROTHIAZIDE\VALSARTAN
     Dosage: 1 DF (160/12.5 MG), QD
     Route: 048
     Dates: start: 2012, end: 2012
  3. HYDROCHLOROTHIAZIDE\VALSARTAN [Suspect]
     Active Substance: HYDROCHLOROTHIAZIDE\VALSARTAN
     Dosage: 1 DF, QD (320/25 MG)
     Route: 048
     Dates: start: 2012, end: 202107
  4. HYDROCHLOROTHIAZIDE\VALSARTAN [Suspect]
     Active Substance: HYDROCHLOROTHIAZIDE\VALSARTAN
     Dosage: 1 DF, BID (160/12.5 MG)
     Route: 048
     Dates: start: 202107
  5. DAFLON [Concomitant]
     Indication: Osteoarthritis
     Dosage: 2 DF (500 MG), UNK
     Route: 065
     Dates: start: 201301
  6. CRESTOR [Concomitant]
     Active Substance: ROSUVASTATIN CALCIUM
     Indication: Blood cholesterol abnormal
     Dosage: 1 DF, DAILY
     Route: 065
     Dates: start: 201305
  7. VARTALON COMPOSITUM [Concomitant]
     Indication: Arthralgia
     Dosage: 1 PACK IN WATER, DAILY
     Route: 065
     Dates: start: 201212
  8. LERCANIDIPINE HYDROCHLORIDE [Concomitant]
     Active Substance: LERCANIDIPINE HYDROCHLORIDE
     Indication: Hypertension
     Dosage: 1 DF, QD
     Route: 065
     Dates: start: 2011
  9. METAMUCIL//PSYLLIUM HYDROPHILIC MUCILLOID [Concomitant]
     Indication: Product used for unknown indication
     Dosage: 1 OT, UNK, NIGHT
     Route: 065
     Dates: start: 201307
  10. STREPTOKINASE-STREPTODORNASE [Concomitant]
     Active Substance: STREPTOKINASE-STREPTODORNASE
     Indication: Product used for unknown indication
     Dosage: 1 UKN, EVERY 12 HRS.
     Route: 065
     Dates: start: 201307
  11. METOPROLOL [Concomitant]
     Active Substance: METOPROLOL
     Indication: Product used for unknown indication
     Dosage: 1 OT, QD
     Route: 065
  12. LERCANIDIPINE [Concomitant]
     Active Substance: LERCANIDIPINE
     Indication: Product used for unknown indication
     Dosage: 1 OT, QD
     Route: 065

REACTIONS (26)
  - Gastroenteritis [Not Recovered/Not Resolved]
  - Spinal disorder [Not Recovered/Not Resolved]
  - Cataract [Not Recovered/Not Resolved]
  - Limb discomfort [Recovered/Resolved]
  - Weight increased [Not Recovered/Not Resolved]
  - Blood pressure increased [Recovered/Resolved]
  - Blood cholesterol increased [Unknown]
  - Anxiety [Recovered/Resolved]
  - Blood glucose increased [Recovered/Resolved]
  - Fall [Recovering/Resolving]
  - Limb discomfort [Recovering/Resolving]
  - Musculoskeletal discomfort [Recovering/Resolving]
  - Blood pressure increased [Unknown]
  - Urinary tract infection [Not Recovered/Not Resolved]
  - Ocular hyperaemia [Recovered/Resolved]
  - Hepatic steatosis [Recovered/Resolved]
  - Irritable bowel syndrome [Not Recovered/Not Resolved]
  - Colitis [Not Recovered/Not Resolved]
  - Gastritis [Not Recovered/Not Resolved]
  - Eructation [Not Recovered/Not Resolved]
  - Infection [Recovered/Resolved]
  - Abdominal discomfort [Not Recovered/Not Resolved]
  - Diarrhoea [Recovered/Resolved]
  - Pollakiuria [Not Recovered/Not Resolved]
  - Headache [Not Recovered/Not Resolved]
  - Inappropriate schedule of product administration [Unknown]

NARRATIVE: CASE EVENT DATE: 20120101
